FAERS Safety Report 20642765 (Version 1)
Quarter: 2022Q1

REPORT INFORMATION
  Report Type: Spontaneous
  Country: RU (occurrence: RU)
  Receive Date: 20220328
  Receipt Date: 20220328
  Transmission Date: 20220423
  Serious: Yes (Other)
  Sender: FDA-Public Use
  Company Number: RU-ELI_LILLY_AND_COMPANY-RU202203007661

PATIENT
  Age: 69 Year
  Sex: Male

DRUGS (2)
  1. RAMUCIRUMAB [Suspect]
     Active Substance: RAMUCIRUMAB
     Indication: Adenocarcinoma gastric
     Dosage: UNK UNK, OTHER (8 MG/KG I/V 1, 15 DAYS)
     Route: 042
     Dates: start: 202003, end: 202106
  2. PACLITAXEL [Concomitant]
     Active Substance: PACLITAXEL
     Indication: Adenocarcinoma gastric
     Dosage: UNK UNK, OTHER (80MG/M? I/V 1, 8, 15 DAYS. EVERY 28 DAYS)
     Route: 042
     Dates: start: 202005, end: 202106

REACTIONS (3)
  - Malignant neoplasm progression [Unknown]
  - Respiratory tract infection viral [Unknown]
  - Asthenia [Unknown]

NARRATIVE: CASE EVENT DATE: 20210601
